FAERS Safety Report 5222789-4 (Version None)
Quarter: 2007Q1

REPORT INFORMATION
  Report Type: 
  Country: None (occurrence: None)
  Receive Date: 20070129
  Receipt Date: 20070123
  Transmission Date: 20070707
  Serious: Yes (Death, Congenital Anomaly)
  Sender: FDA-Public Use
  Company Number: US-GLAXOSMITHKLINE-A0636916A

PATIENT
  Sex: Male
  Weight: 1 kg

DRUGS (5)
  1. COMBIVIR [Suspect]
     Indication: HIV INFECTION
     Dosage: 2TAB PER DAY
     Dates: start: 20051230, end: 20060417
  2. ALCOHOL [Suspect]
  3. NELFINAVIR [Concomitant]
     Indication: HIV INFECTION
     Dosage: 2500MG PER DAY
     Dates: start: 20051230, end: 20060417
  4. LOVENOX [Concomitant]
  5. COUMADIN [Concomitant]

REACTIONS (22)
  - ABDOMINAL MASS [None]
  - ASCITES [None]
  - CARDIAC FAILURE [None]
  - CARDIOMEGALY [None]
  - CEREBELLAR HAEMORRHAGE [None]
  - DECREASED ACTIVITY [None]
  - DISSEMINATED INTRAVASCULAR COAGULATION [None]
  - DRUG EXPOSURE DURING PREGNANCY [None]
  - GENERALISED OEDEMA [None]
  - HAEMORRHAGE [None]
  - HYDROPS FOETALIS [None]
  - HYPOTENSION [None]
  - MECONIUM PERITONITIS [None]
  - OEDEMA [None]
  - PERICARDIAL EFFUSION [None]
  - PLEURAL EFFUSION [None]
  - PREMATURE BABY [None]
  - PULMONARY HYPOPLASIA [None]
  - RENAL FAILURE [None]
  - RESPIRATORY FAILURE [None]
  - SEPSIS [None]
  - URINE OUTPUT DECREASED [None]
